FAERS Safety Report 8575487-3 (Version None)
Quarter: 2012Q3

REPORT INFORMATION
  Report Type: 
  Country: None (occurrence: None)
  Receive Date: 20120807
  Receipt Date: 20120802
  Transmission Date: 20120928
  Serious: Yes (Hospitalization)
  Sender: FDA-Public Use
  Company Number: PHHY2012AU057042

PATIENT
  Sex: Female

DRUGS (6)
  1. EZETIMIBE [Concomitant]
     Dosage: 10 MG, (MANE)
     Route: 048
  2. CLOZARIL [Suspect]
     Dosage: UNK UKN, UNK
     Route: 048
     Dates: start: 20120627, end: 20120703
  3. INSULIN [Concomitant]
     Dosage: UNK
  4. CLOZARIL [Suspect]
     Indication: SCHIZOPHRENIA
     Dosage: 100 MG, DAILY
     Route: 048
     Dates: start: 20070530, end: 20120310
  5. IRBESARTAN [Concomitant]
     Dosage: 300 MG, MANE
     Route: 048
  6. LERCANIDIPINE [Concomitant]
     Dosage: 20 MG, MANE
     Route: 048

REACTIONS (8)
  - TREATMENT NONCOMPLIANCE [None]
  - PARANOIA [None]
  - PSYCHOTIC DISORDER [None]
  - GRANDIOSITY [None]
  - DELUSION [None]
  - MALAISE [None]
  - AGGRESSION [None]
  - MENTAL DISORDER [None]
